FAERS Safety Report 7674259-1 (Version None)
Quarter: 2011Q3

REPORT INFORMATION
  Report Type: 
  Country: None (occurrence: None)
  Receive Date: 20110810
  Receipt Date: 20110805
  Transmission Date: 20111222
  Serious: Yes (Other)
  Sender: FDA-Public Use
  Company Number: GB-PFIZER INC-2011180761

PATIENT
  Sex: Male

DRUGS (1)
  1. RAPAMUNE [Suspect]
     Dosage: 2 MG, 1X/DAY IN THE MORNING

REACTIONS (1)
  - INTESTINAL OPERATION [None]
